FAERS Safety Report 5121723-5 (Version None)
Quarter: 2006Q4

REPORT INFORMATION
  Report Type: 
  Country: None (occurrence: None)
  Receive Date: 20061006
  Receipt Date: 20060717
  Transmission Date: 20070319
  Serious: Yes (Hospitalization)
  Sender: FDA-Public Use
  Company Number: FR-GILEAD-2006-0009907

PATIENT
  Sex: Male

DRUGS (3)
  1. VIREAD [Suspect]
     Route: 048
     Dates: start: 20030515, end: 20060522
  2. EPIVIR [Suspect]
     Route: 048
     Dates: start: 20030515
  3. KALETRA [Suspect]
     Route: 048
     Dates: start: 20030515

REACTIONS (3)
  - DEHYDRATION [None]
  - RENAL FAILURE ACUTE [None]
  - RENAL TUBULAR DISORDER [None]
